FAERS Safety Report 4961628-3 (Version None)
Quarter: 2006Q1

REPORT INFORMATION
  Report Type: 
  Country: None (occurrence: None)
  Receive Date: 20060329
  Receipt Date: 20060317
  Transmission Date: 20060701
  Serious: Yes (Disabling, Other)
  Sender: FDA-Public Use
  Company Number: 13743

PATIENT
  Age: 62 Year
  Sex: Male
  Weight: 82 kg

DRUGS (5)
  1. CARBOPLATIN [Suspect]
     Indication: NON-SMALL CELL LUNG CANCER
     Dosage: 390 MG IV
     Route: 042
     Dates: start: 20020404, end: 20050614
  2. GEMCITABINE [Suspect]
     Indication: NON-SMALL CELL LUNG CANCER
     Dosage: 1800 MG IV
     Route: 042
     Dates: start: 20050404, end: 20050621
  3. DF118 [Concomitant]
  4. AMITRIPTYLINE HCL [Concomitant]
  5. AMOXICILLIN [Concomitant]

REACTIONS (1)
  - HICCUPS [None]
